FAERS Safety Report 5573126-7 (Version None)
Quarter: 2007Q4

REPORT INFORMATION
  Report Type: 
  Country: None (occurrence: None)
  Receive Date: 20071220
  Receipt Date: 20071220
  Transmission Date: 20080405
  Serious: Yes (Life-Threatening, Hospitalization)
  Sender: FDA-Public Use
  Company Number: None

PATIENT
  Age: 86 Year
  Sex: Male

DRUGS (2)
  1. WARFARIN SODIUM [Suspect]
     Indication: DEEP VEIN THROMBOSIS
     Dosage: 2.5MG  EVERY DAY PO
     Route: 048
     Dates: start: 20070918, end: 20070924
  2. ENOXAPARIN SODIUM [Suspect]
     Indication: DEEP VEIN THROMBOSIS
     Dosage: 80MG BID SQ
     Route: 058
     Dates: start: 20070911, end: 20070924

REACTIONS (1)
  - HAEMORRHAGE [None]
